FAERS Safety Report 4930902-9 (Version None)
Quarter: 2006Q1

REPORT INFORMATION
  Report Type: 
  Country: None (occurrence: None)
  Receive Date: 20060227
  Receipt Date: 20060220
  Transmission Date: 20060701
  Serious: Yes (Hospitalization)
  Sender: FDA-Public Use
  Company Number: S06-FRA-00605-01

PATIENT
  Age: 76 Year
  Sex: Male

DRUGS (3)
  1. MEMANTINE HCL [Suspect]
     Dosage: 10 MG QD PO
     Route: 048
     Dates: start: 20051214, end: 20051229
  2. COVERSYL (PERINDOPRIL) [Concomitant]
  3. TANAKAN (GINKGO BILOBA EXTRACT) [Concomitant]

REACTIONS (4)
  - CEREBRAL ATROPHY [None]
  - CONFUSIONAL STATE [None]
  - DELIRIUM [None]
  - PYREXIA [None]
